FAERS Safety Report 11729264 (Version 1)
Quarter: 2015Q4

REPORT INFORMATION
  Report Type: Spontaneous
  Country: US (occurrence: US)
  Receive Date: 20151110
  Receipt Date: 20151110
  Transmission Date: 20160304
  Serious: No
  Sender: FDA-Public Use
  Company Number: US-ELI_LILLY_AND_COMPANY-US201111006299

PATIENT
  Sex: Female
  Weight: 59 kg

DRUGS (3)
  1. FORTEO [Suspect]
     Active Substance: TERIPARATIDE
     Indication: OSTEOPOROSIS
     Dosage: 20 UG, QD
  2. FORTEO [Suspect]
     Active Substance: TERIPARATIDE
     Dosage: 20 UG, QD
  3. FORTEO [Suspect]
     Active Substance: TERIPARATIDE
     Dosage: 20 UG, QD

REACTIONS (10)
  - Injection site bruising [Unknown]
  - Malaise [Unknown]
  - Injection site rash [Recovered/Resolved]
  - Vomiting [Unknown]
  - Injection site reaction [Unknown]
  - Dizziness [Unknown]
  - Hypersensitivity [Recovered/Resolved]
  - Feeling abnormal [Unknown]
  - Discomfort [Unknown]
  - Nausea [Unknown]
